FAERS Safety Report 9680266 (Version 1)
Quarter: 2013Q4

REPORT INFORMATION
  Report Type: Report from Study
  Country: US (occurrence: US)
  Receive Date: 20131111
  Receipt Date: 20131111
  Transmission Date: 20140711
  Serious: Yes (Other)
  Sender: FDA-Public Use
  Company Number: US-ROCHE-1298283

PATIENT
  Sex: 0

DRUGS (4)
  1. BEVACIZUMAB [Suspect]
     Indication: HEPATOCELLULAR CARCINOMA
     Dosage: CYCLE 1 (14 DAYS), ALONE ON DAY 1
     Route: 042
  2. BEVACIZUMAB [Suspect]
     Dosage: FOR CYCLE 2 AND SUBSEQUENT CYCLES (28 DAYS), ON DAYS 1 AND 15
     Route: 042
  3. GEMCITABINE [Suspect]
     Indication: HEPATOCELLULAR CARCINOMA
     Dosage: DOSE RATE INFUSION AT 10 MG/M2/MIN
     Route: 042
  4. OXALIPLATIN [Suspect]
     Indication: HEPATOCELLULAR CARCINOMA
     Dosage: AS A 2-HOUR INTRAVENOUS INFUSION ON DAYS 2 AND 16 OF EVERY CYCLE
     Route: 042

REACTIONS (20)
  - Small intestinal perforation [Unknown]
  - Neutropenia [Unknown]
  - Hypertension [Unknown]
  - Epistaxis [Unknown]
  - Haematochezia [Unknown]
  - Upper gastrointestinal haemorrhage [Unknown]
  - Leukopenia [Unknown]
  - Fatigue [Unknown]
  - Decreased appetite [Unknown]
  - Thrombocytopenia [Unknown]
  - Anaemia [Unknown]
  - Nausea [Unknown]
  - Vomiting [Unknown]
  - Lymphopenia [Unknown]
  - Hypersensitivity [Unknown]
  - Diarrhoea [Unknown]
  - Neuropathy peripheral [Unknown]
  - Alanine aminotransferase increased [Unknown]
  - Aspartate aminotransferase increased [Unknown]
  - Blood alkaline phosphatase abnormal [Unknown]
